FAERS Safety Report 8292089-7 (Version None)
Quarter: 2012Q2

REPORT INFORMATION
  Report Type: 
  Country: None (occurrence: None)
  Receive Date: 20120417
  Receipt Date: 20120103
  Transmission Date: 20120825
  Serious: No
  Sender: FDA-Public Use
  Company Number: US-ASTRAZENECA-2011SE72566

PATIENT
  Age: 78 Year
  Sex: Female
  Weight: 90.7 kg

DRUGS (6)
  1. ISOSORBIDE MONONITRATE [Concomitant]
     Indication: BLOOD PRESSURE ABNORMAL
  2. NEXIUM [Suspect]
     Indication: GASTROOESOPHAGEAL REFLUX DISEASE
     Route: 048
  3. LISINOPRIL [Suspect]
     Indication: BLOOD PRESSURE
     Route: 048
  4. CRESTOR [Suspect]
     Indication: BLOOD CHOLESTEROL ABNORMAL
     Route: 048
  5. DELTIAZAM [Concomitant]
     Indication: BLOOD PRESSURE ABNORMAL
  6. OMEPRAZOLE [Concomitant]

REACTIONS (3)
  - DRUG DOSE OMISSION [None]
  - CARDIAC DISORDER [None]
  - BLOOD PRESSURE INCREASED [None]
